FAERS Safety Report 12854697 (Version 1)
Quarter: 2016Q4

REPORT INFORMATION
  Report Type: Spontaneous
  Country: US (occurrence: US)
  Receive Date: 20161017
  Receipt Date: 20161017
  Transmission Date: 20170207
  Serious: No
  Sender: FDA-Public Use
  Company Number: US-ELI_LILLY_AND_COMPANY-US201610002606

PATIENT
  Age: 61 Year
  Sex: Male

DRUGS (2)
  1. MOTRIN [Concomitant]
     Active Substance: IBUPROFEN
     Dosage: 800 MG, UNKNOWN
     Route: 065
  2. CIALIS [Suspect]
     Active Substance: TADALAFIL
     Indication: ERECTILE DYSFUNCTION
     Dosage: 20 MG, PRN
     Route: 065
     Dates: start: 201210

REACTIONS (2)
  - Drug ineffective [Unknown]
  - Intentional product misuse [Unknown]

NARRATIVE: CASE EVENT DATE: 20160808
